FAERS Safety Report 9425788 (Version 1)
Quarter: 2013Q3

REPORT INFORMATION
  Report Type: Report from Study
  Country: US (occurrence: US)
  Receive Date: 20130729
  Receipt Date: 20130729
  Transmission Date: 20140515
  Serious: Yes (Disabling)
  Sender: FDA-Public Use
  Company Number: US-US-EMD SERONO, INC.-7226150

PATIENT
  Sex: Female

DRUGS (3)
  1. REBIF [Suspect]
     Indication: PRODUCT USED FOR UNKNOWN INDICATION
     Route: 058
     Dates: start: 200508, end: 200611
  2. REBIF [Suspect]
     Dates: start: 201004, end: 201305
  3. REBIF [Suspect]
     Route: 058
     Dates: start: 20130710

REACTIONS (3)
  - Mobility decreased [Not Recovered/Not Resolved]
  - Contusion [Not Recovered/Not Resolved]
  - Injection site bruising [Not Recovered/Not Resolved]
